FAERS Safety Report 19836209 (Version 1)
Quarter: 2021Q3

REPORT INFORMATION
  Report Type: Spontaneous
  Country: US (occurrence: US)
  Receive Date: 20210915
  Receipt Date: 20210915
  Transmission Date: 20211014
  Serious: No
  Sender: FDA-Public Use
  Company Number: US-BIOHAVEN PHARMACEUTICALS-2021BHV01043

PATIENT
  Sex: Female

DRUGS (3)
  1. NURTEC ODT [Suspect]
     Active Substance: RIMEGEPANT SULFATE
     Indication: ILL-DEFINED DISORDER
     Dosage: AT NIGHT
     Dates: start: 202106, end: 2021
  2. NURTEC ODT [Suspect]
     Active Substance: RIMEGEPANT SULFATE
     Indication: PROPHYLAXIS
     Dosage: UNK, EVERY 48 HOURS
     Dates: start: 2021, end: 2021
  3. ARMOUR?BRAND THYROID [Concomitant]
     Dosage: AT NIGHT

REACTIONS (2)
  - Intentional product use issue [Recovered/Resolved]
  - Headache [Unknown]

NARRATIVE: CASE EVENT DATE: 2021
